FAERS Safety Report 11228266 (Version 1)
Quarter: 2015Q2

REPORT INFORMATION
  Report Type: Spontaneous
  Country: SE (occurrence: SE)
  Receive Date: 20150630
  Receipt Date: 20150630
  Transmission Date: 20150821
  Serious: Yes (Death, Hospitalization, Other)
  Sender: FDA-Public Use
  Company Number: SE-SHIRE-SE201506549

PATIENT
  Age: 31 Year
  Sex: Male
  Weight: 140 kg

DRUGS (6)
  1. 8-THC [Concomitant]
     Indication: PRODUCT USED FOR UNKNOWN INDICATION
     Dosage: UNK, UNKNOWN
     Route: 065
  2. CLOMIPRAMINE [Concomitant]
     Active Substance: CLOMIPRAMINE
     Indication: PRODUCT USED FOR UNKNOWN INDICATION
     Dosage: 375 MG, 1X/DAY:QD
     Route: 065
  3. BUPRENORPHINE [Concomitant]
     Active Substance: BUPRENORPHINE
     Indication: PRODUCT USED FOR UNKNOWN INDICATION
     Dosage: UNK, UNKNOWN
     Route: 065
  4. LISDEXAMFETAMINE DIMESYLATE [Suspect]
     Active Substance: LISDEXAMFETAMINE DIMESYLATE
     Indication: ATTENTION DEFICIT/HYPERACTIVITY DISORDER
     Dosage: 130 MG, 1X/DAY:QD
     Route: 065
  5. TRAMADOL [Concomitant]
     Active Substance: TRAMADOL
     Indication: PRODUCT USED FOR UNKNOWN INDICATION
     Dosage: UNK, UNKNOWN
     Route: 065
  6. FLUNITRAZEPAM [Concomitant]
     Active Substance: FLUNITRAZEPAM
     Indication: PRODUCT USED FOR UNKNOWN INDICATION
     Dosage: 1 MG, 1X/DAY:QD
     Route: 065

REACTIONS (13)
  - Confusional state [Unknown]
  - Aggression [Unknown]
  - Blood creatine phosphokinase increased [Unknown]
  - Seizure [Unknown]
  - Tachycardia [Unknown]
  - Hyperhidrosis [Unknown]
  - Stress [Unknown]
  - Drug interaction [Unknown]
  - Circulatory collapse [Fatal]
  - Hyperthermia [Unknown]
  - Agitation [Unknown]
  - Disorientation [Unknown]
  - Overdose [Unknown]
